FAERS Safety Report 21287803 (Version 1)
Quarter: 2022Q3

REPORT INFORMATION
  Report Type: Spontaneous
  Country: US (occurrence: US)
  Receive Date: 20220902
  Receipt Date: 20220902
  Transmission Date: 20221027
  Serious: No
  Sender: FDA-Public Use
  Company Number: US-ABBVIE-22K-163-4520644-00

PATIENT
  Sex: Male

DRUGS (1)
  1. DEPAKOTE ER [Suspect]
     Active Substance: DIVALPROEX SODIUM
     Indication: Craniocerebral injury
     Route: 048

REACTIONS (5)
  - Off label use [Unknown]
  - Affective disorder [Unknown]
  - Fatigue [Unknown]
  - Irritability [Unknown]
  - Product quality issue [Not Recovered/Not Resolved]
